FAERS Safety Report 15884472 (Version 1)
Quarter: 2019Q1

REPORT INFORMATION
  Report Type: Spontaneous
  Country: US (occurrence: US)
  Receive Date: 20190129
  Receipt Date: 20190129
  Transmission Date: 20190417
  Serious: No
  Sender: FDA-Public Use
  Company Number: US-LANNETT COMPANY, INC.-US-2018LAN001281

PATIENT

DRUGS (3)
  1. BACLOFEN (10MG) [Suspect]
     Active Substance: BACLOFEN
     Indication: MUSCLE SPASTICITY
     Dosage: 2 AND 1/2 TABS IN THE MORNING; 2 AND 1/2 TABS AT BEDTIME; 2 TABS AT MIDDAY
     Route: 048
  2. BACLOFEN (10MG) [Suspect]
     Active Substance: BACLOFEN
     Dosage: OTHER MANUFACTURER BACLOFEN (IMPRINT V AND 2265)
     Route: 048
  3. BACLOFEN (10MG) [Suspect]
     Active Substance: BACLOFEN
     Dosage: UNK (LANNETT BACLOFEN)
     Route: 048
     Dates: start: 20180912

REACTIONS (1)
  - Drug ineffective [Unknown]

NARRATIVE: CASE EVENT DATE: 2018
